FAERS Safety Report 4410534-1 (Version None)
Quarter: 2004Q3

REPORT INFORMATION
  Report Type: 
  Country: None (occurrence: None)
  Receive Date: 20040726
  Receipt Date: 20040716
  Transmission Date: 20050211
  Serious: Yes (Hospitalization)
  Sender: FDA-Public Use
  Company Number: 2004UW09577

PATIENT
  Age: 64 Year
  Sex: Female

DRUGS (16)
  1. SEROQUEL [Suspect]
     Indication: HALLUCINATION, TACTILE
     Dosage: 300 MG DAILY PO
     Route: 048
  2. SEROQUEL [Suspect]
     Indication: POST-TRAUMATIC STRESS DISORDER
     Dosage: 300 MG DAILY PO
     Route: 048
  3. SEROQUEL [Suspect]
     Indication: PSYCHOTIC DISORDER
     Dosage: 300 MG DAILY PO
     Route: 048
  4. SEROQUEL [Suspect]
     Indication: SLEEP DISORDER
     Dosage: 300 MG DAILY PO
     Route: 048
  5. SEROQUEL [Suspect]
     Indication: HALLUCINATION, TACTILE
     Dosage: 800 MG DAILY PO
     Route: 048
     Dates: end: 20040101
  6. SEROQUEL [Suspect]
     Indication: POST-TRAUMATIC STRESS DISORDER
     Dosage: 800 MG DAILY PO
     Route: 048
     Dates: end: 20040101
  7. SEROQUEL [Suspect]
     Indication: PSYCHOTIC DISORDER
     Dosage: 800 MG DAILY PO
     Route: 048
     Dates: end: 20040101
  8. SEROQUEL [Suspect]
     Indication: SLEEP DISORDER
     Dosage: 800 MG DAILY PO
     Route: 048
     Dates: end: 20040101
  9. LEXAPRO [Concomitant]
  10. NORVASC [Concomitant]
  11. DIOVAN [Concomitant]
  12. CELEXA [Concomitant]
  13. AMBIEN [Concomitant]
  14. UNSPECIFIED HYPERTENSION MEDICATION [Concomitant]
  15. UNSPECIFIED INHALERS [Concomitant]
  16. INSULIN [Concomitant]

REACTIONS (9)
  - AGITATION [None]
  - DIABETES MELLITUS [None]
  - DIABETIC COMA [None]
  - FEELING ABNORMAL [None]
  - HYPERTENSION [None]
  - INSOMNIA [None]
  - PAINFUL RESPIRATION [None]
  - SELF ESTEEM DECREASED [None]
  - SPEECH DISORDER [None]
